FAERS Safety Report 8116631-1 (Version None)
Quarter: 2012Q1

REPORT INFORMATION
  Report Type: 
  Country: None (occurrence: None)
  Receive Date: 20120206
  Receipt Date: 20120126
  Transmission Date: 20120608
  Serious: Yes (Other)
  Sender: FDA-Public Use
  Company Number: PHEH2011US00603

PATIENT
  Sex: Male

DRUGS (3)
  1. GLEEVEC [Suspect]
     Dosage: 400 MG, DAILY
     Route: 048
     Dates: start: 20110707
  2. GLEEVEC [Suspect]
     Dosage: 200 MG (HALF TABLET), DAILY
     Route: 048
  3. GLEEVEC [Suspect]
     Indication: GASTRIC CANCER
     Dosage: 400 MG, DAILY
     Route: 048
     Dates: start: 20081024

REACTIONS (8)
  - ABDOMINAL DISCOMFORT [None]
  - INFLUENZA LIKE ILLNESS [None]
  - HEADACHE [None]
  - GASTROINTESTINAL STROMAL TUMOUR [None]
  - IMPAIRED GASTRIC EMPTYING [None]
  - SOMNOLENCE [None]
  - FATIGUE [None]
  - PAIN [None]
